FAERS Safety Report 14639991 (Version 2)
Quarter: 2018Q1

REPORT INFORMATION
  Report Type: Report from Study
  Country: FR (occurrence: FR)
  Receive Date: 20180315
  Receipt Date: 20180327
  Transmission Date: 20180509
  Serious: Yes (Death)
  Sender: FDA-Public Use
  Company Number: FR-ROCHE-2068514

PATIENT
  Sex: Male

DRUGS (3)
  1. RANIBIZUMAB. [Suspect]
     Active Substance: RANIBIZUMAB
     Indication: DIABETIC RETINAL OEDEMA
     Dosage: (LEFT EYE)
     Route: 031
     Dates: start: 20150303
  2. RANIBIZUMAB. [Suspect]
     Active Substance: RANIBIZUMAB
     Route: 031
     Dates: start: 20170724, end: 20170724
  3. RANIBIZUMAB. [Suspect]
     Active Substance: RANIBIZUMAB
     Dosage: (LEFT EYE)
     Route: 031
     Dates: start: 20170121

REACTIONS (3)
  - Adrenal disorder [Unknown]
  - Lung disorder [Unknown]
  - Non-small cell lung cancer [Fatal]

NARRATIVE: CASE EVENT DATE: 201709
